FAERS Safety Report 4458173-0 (Version None)
Quarter: 2004Q3

REPORT INFORMATION
  Report Type: 
  Country: None (occurrence: None)
  Receive Date: 20040924
  Receipt Date: 20040903
  Transmission Date: 20050211
  Serious: Yes (Hospitalization)
  Sender: FDA-Public Use
  Company Number: CA-ABBOTT-04P-028-0272719-00

PATIENT
  Sex: Female

DRUGS (19)
  1. EPIVAL TABLETS [Suspect]
     Indication: DEPRESSION
     Route: 048
     Dates: start: 20040217, end: 20040821
  2. EPIVAL TABLETS [Suspect]
     Route: 048
     Dates: start: 20040217, end: 20040821
  3. RITONAVIR SOFT GELATIN CAPSULES [Suspect]
     Indication: HIV INFECTION
     Route: 048
     Dates: start: 20021211, end: 20040821
  4. RITONAVIR SOFT GELATIN CAPSULES [Suspect]
     Route: 048
     Dates: start: 20020626, end: 20021211
  5. TIPRANAVIR [Suspect]
     Indication: HIV INFECTION
     Route: 048
     Dates: start: 20020626, end: 20040821
  6. PROCYCLIDINE HYDROCHLORIDE 2MG TAB [Suspect]
     Indication: PROPHYLAXIS
     Route: 048
     Dates: start: 20040322, end: 20040821
  7. OLANZAPINE [Suspect]
     Indication: PSYCHOTIC DISORDER
     Route: 048
     Dates: start: 20030214, end: 20040821
  8. OLANZAPINE [Suspect]
     Route: 048
     Dates: start: 20030214, end: 20040821
  9. RISPERIDONE [Suspect]
     Indication: PSYCHOTIC DISORDER
     Route: 048
     Dates: start: 20040706, end: 20040821
  10. TRAZODONE HCL [Suspect]
     Indication: ANTIDEPRESSANT THERAPY
     Route: 048
     Dates: end: 20040821
  11. QUETIAPINE [Suspect]
     Indication: PSYCHOTIC DISORDER
     Route: 048
     Dates: start: 20040729, end: 20040821
  12. LAMIVUDINE [Concomitant]
     Indication: HIV INFECTION
     Route: 048
     Dates: end: 20040821
  13. ABACAVIR [Concomitant]
     Indication: HIV INFECTION
     Route: 048
     Dates: end: 20040821
  14. PARACETAMOL [Concomitant]
     Indication: PAIN IN EXTREMITY
     Route: 048
     Dates: start: 20021211, end: 20040821
  15. ATOVAQUONE [Concomitant]
     Indication: INFECTION PROPHYLAXIS
     Route: 048
     Dates: end: 20040821
  16. CALCIUM CARBONATE [Concomitant]
     Indication: DIARRHOEA
     Route: 048
     Dates: end: 20040821
  17. MAGIC MOUTHWASH [Concomitant]
     Indication: ORAL CANDIDIASIS
     Dates: end: 20040821
  18. NYSTATIN [Concomitant]
     Indication: ORAL CANDIDIASIS
     Route: 048
  19. MEGAVIM [Concomitant]
     Indication: VITAMIN SUPPLEMENTATION
     Route: 048
     Dates: end: 20040821

REACTIONS (9)
  - BLOOD BILIRUBIN INCREASED [None]
  - CONDITION AGGRAVATED [None]
  - HEPATIC ENZYME INCREASED [None]
  - HEPATOTOXICITY [None]
  - HYPOMANIA [None]
  - NAUSEA [None]
  - PSYCHOTIC DISORDER [None]
  - SCHIZOPHRENIA [None]
  - VOMITING [None]
